FAERS Safety Report 20167182 (Version 3)
Quarter: 2021Q4

REPORT INFORMATION
  Report Type: Spontaneous
  Country: CN (occurrence: CN)
  Receive Date: 20211209
  Receipt Date: 20211223
  Transmission Date: 20220304
  Serious: Yes (Hospitalization, Other)
  Sender: FDA-Public Use
  Company Number: CN-009507513-2112CHN001811

PATIENT
  Age: 7 Year
  Sex: Male
  Weight: 24 kg

DRUGS (3)
  1. NOXAFIL [Interacting]
     Active Substance: POSACONAZOLE
     Indication: Infection prophylaxis
     Dosage: 3 MILLILITER(120 MG), TID
     Dates: start: 20190602
  2. VINDESINE [Interacting]
     Active Substance: VINDESINE
     Indication: Acute lymphocytic leukaemia
     Dosage: 2.9 MG (3 MG/(M2?TIME))
     Route: 041
     Dates: start: 20190725, end: 20190725
  3. VINDESINE [Interacting]
     Active Substance: VINDESINE
     Dosage: 2.8 MILLIGRAM
     Route: 041

REACTIONS (8)
  - Neurotoxicity [Recovered/Resolved]
  - Myelosuppression [Recovered/Resolved]
  - Drug level increased [Unknown]
  - Drug interaction [Unknown]
  - Electrolyte imbalance [Unknown]
  - Product use in unapproved indication [Unknown]
  - Product use issue [Unknown]
  - Incorrect dose administered [Unknown]

NARRATIVE: CASE EVENT DATE: 20190602
